FAERS Safety Report 16627242 (Version 1)
Quarter: 2019Q3

REPORT INFORMATION
  Report Type: Spontaneous
  Country: US (occurrence: US)
  Receive Date: 20190724
  Receipt Date: 20190724
  Transmission Date: 20191004
  Serious: No
  Sender: FDA-Public Use
  Company Number: US-ANTARES PHARMA, INC.-2019-SPO-XY-0002

PATIENT

DRUGS (9)
  1. XYOSTED [Suspect]
     Active Substance: TESTOSTERONE ENANTHATE
     Dosage: 75 MG, ONCE
     Route: 058
     Dates: start: 20190503
  2. XYOSTED [Suspect]
     Active Substance: TESTOSTERONE ENANTHATE
     Dosage: 75 MG, ONCE
     Route: 058
     Dates: start: 20190510
  3. XYOSTED [Suspect]
     Active Substance: TESTOSTERONE ENANTHATE
     Indication: PRODUCT USED FOR UNKNOWN INDICATION
     Dosage: 75 MG, ONCE
     Route: 058
     Dates: start: 20190426
  4. LIPITOR [Concomitant]
     Active Substance: ATORVASTATIN CALCIUM
  5. MAVIK [Concomitant]
     Active Substance: TRANDOLAPRIL
  6. XYOSTED [Suspect]
     Active Substance: TESTOSTERONE ENANTHATE
     Dosage: 75 MG, ONCE
     Route: 058
     Dates: start: 20190517
  7. SYNTHROID [Concomitant]
     Active Substance: LEVOTHYROXINE SODIUM
  8. LABETALOL [Concomitant]
     Active Substance: LABETALOL\LABETALOL HYDROCHLORIDE
  9. PROTONIX                           /00661201/ [Concomitant]
     Active Substance: OMEPRAZOLE

REACTIONS (5)
  - Lip swelling [Unknown]
  - Lip exfoliation [Unknown]
  - Hypoaesthesia [Unknown]
  - Dry mouth [Unknown]
  - Lip dry [Unknown]

NARRATIVE: CASE EVENT DATE: 20190426
